FAERS Safety Report 5728861-4 (Version None)
Quarter: 2008Q2

REPORT INFORMATION
  Report Type: 
  Country: None (occurrence: None)
  Receive Date: 20080430
  Receipt Date: 20080415
  Transmission Date: 20081010
  Serious: Yes (Other)
  Sender: FDA-Public Use
  Company Number: E3810-01804-SPO-FR

PATIENT
  Age: 50 Year
  Sex: Male

DRUGS (3)
  1. RABEPRAZOLE SODIUM [Suspect]
     Dosage: ORAL
     Route: 048
     Dates: start: 20070212, end: 20070401
  2. ATORVASTATIN CALCIUM [Suspect]
     Dosage: ORAL
     Route: 048
     Dates: start: 19930101
  3. INEXIUM (ESOMEPRAZOLE) [Suspect]
     Dosage: 40 MG, ORAL
     Route: 048
     Dates: start: 20070402, end: 20070422

REACTIONS (2)
  - SJOGREN'S SYNDROME [None]
  - SYSTEMIC LUPUS ERYTHEMATOSUS [None]
